FAERS Safety Report 9512604 (Version 1)
Quarter: 2013Q1

REPORT INFORMATION
  Report Type: Spontaneous
  Country: PR (occurrence: None)
  Receive Date: 20130305
  Receipt Date: 20130305
  Transmission Date: 20140127
  Serious: Yes (Other)
  Sender: FDA-Public Use
  Company Number: 163-21880-12090703

PATIENT
  Age: 48 Year
  Sex: Male
  Weight: 89.36 kg

DRUGS (1)
  1. REVLIMID (LENALIDOMIDE) (25 MILLIGRAM, CAPSULES) [Suspect]
     Indication: PLASMA CELL MYELOMA
     Dosage: 21 IN 21 DAYS
     Route: 048
     Dates: start: 20120626, end: 20120629

REACTIONS (2)
  - Chest pain [None]
  - Hypertension [None]
